FAERS Safety Report 23856749 (Version 1)
Quarter: 2024Q2

REPORT INFORMATION
  Report Type: Spontaneous
  Country: DE (occurrence: DE)
  Receive Date: 20240515
  Receipt Date: 20240515
  Transmission Date: 20240715
  Serious: Yes (Hospitalization, Other)
  Sender: FDA-Public Use
  Company Number: DE-BFARM-24001244

PATIENT
  Age: 38 Year
  Sex: Female

DRUGS (3)
  1. GANIRELIX [Suspect]
     Active Substance: GANIRELIX
     Indication: Assisted reproductive technology
     Dosage: UNK
     Route: 065
  2. CHORIOGONADOTROPIN ALFA [Suspect]
     Active Substance: CHORIOGONADOTROPIN ALFA
     Indication: Assisted reproductive technology
     Dosage: 250 MCG
     Route: 065
  3. MENOTROPINS [Suspect]
     Active Substance: MENOTROPINS
     Indication: Assisted reproductive technology
     Dosage: 225 INTERNATIONAL UNIT
     Route: 065

REACTIONS (2)
  - Ovarian hyperstimulation syndrome [Recovered/Resolved]
  - Ascites [Unknown]

NARRATIVE: CASE EVENT DATE: 20240201
